FAERS Safety Report 24704055 (Version 2)
Quarter: 2024Q4

REPORT INFORMATION
  Report Type: Spontaneous
  Country: CN (occurrence: CN)
  Receive Date: 20241206
  Receipt Date: 20241218
  Transmission Date: 20250115
  Serious: Yes (Other)
  Sender: SANOFI AVENTIS
  Company Number: CN-SANOFI-02321074

PATIENT
  Sex: Female

DRUGS (1)
  1. IRBESARTAN [Suspect]
     Active Substance: IRBESARTAN
     Indication: Hypertension
     Dosage: 0.5 DF, QD
     Route: 048

REACTIONS (5)
  - Cerebral infarction [Unknown]
  - Hypoaesthesia [Unknown]
  - Impatience [Unknown]
  - Headache [Unknown]
  - Wrong technique in product usage process [Unknown]
